FAERS Safety Report 7214082-5 (Version None)
Quarter: 2010Q4

REPORT INFORMATION
  Report Type: 
  Country: None (occurrence: None)
  Receive Date: 20101227
  Receipt Date: 20101129
  Transmission Date: 20110411
  Serious: Yes (Hospitalization)
  Sender: FDA-Public Use
  Company Number: 1000017524

PATIENT
  Age: 66 Year
  Sex: Female

DRUGS (3)
  1. NEBIVOLOL (NEBIVOLOL HYDROCHLORIDE) [Suspect]
  2. LEVOTHYROID (LEVOTHYROXINE SODIUM) [Suspect]
  3. RABEPRAZOLE (RABEPRAZOLE) [Suspect]
     Indication: PEPTIC ULCER

REACTIONS (5)
  - ANAPHYLACTIC REACTION [None]
  - ANGIOEDEMA [None]
  - FLUSHING [None]
  - PRURITUS GENERALISED [None]
  - URINARY INCONTINENCE [None]
